FAERS Safety Report 8222834-8 (Version None)
Quarter: 2012Q1

REPORT INFORMATION
  Report Type: 
  Country: None (occurrence: None)
  Receive Date: 20120320
  Receipt Date: 20120305
  Transmission Date: 20120608
  Serious: Yes (Other)
  Sender: FDA-Public Use
  Company Number: US-ENDO PHARMACEUTICALS INC.-METH20120002

PATIENT
  Age: 21 Year
  Sex: Female

DRUGS (3)
  1. ALLEGRA-D 12 HOUR [Concomitant]
     Route: 048
     Dates: start: 20110228
  2. METHYLPREDNISOLONE [Suspect]
     Indication: PRODUCT USED FOR UNKNOWN INDICATION
     Dosage: 4 MG
     Route: 048
     Dates: start: 20110223
  3. ALLEGRA-D 12 HOUR [Concomitant]
     Indication: SINUSITIS
     Route: 048
     Dates: end: 20110228

REACTIONS (4)
  - VOMITING [None]
  - PNEUMOTHORAX [None]
  - OESOPHAGEAL RUPTURE [None]
  - SUBCUTANEOUS EMPHYSEMA [None]
